FAERS Safety Report 4424002-4 (Version None)
Quarter: 2004Q3

REPORT INFORMATION
  Report Type: 
  Country: None (occurrence: None)
  Receive Date: 20040812
  Receipt Date: 20040802
  Transmission Date: 20050211
  Serious: Yes (Death)
  Sender: FDA-Public Use
  Company Number: JP-BRISTOL-MYERS SQUIBB COMPANY-12659801

PATIENT
  Age: 78 Year
  Sex: Male

DRUGS (2)
  1. MAXIPIME [Suspect]
     Indication: PNEUMONIA
     Route: 041
     Dates: start: 20040801, end: 20040801
  2. LEVOFLOXACIN [Suspect]
     Indication: PNEUMONIA
     Dosage: ONCE DAILY
     Route: 048
     Dates: start: 20040731, end: 20040731

REACTIONS (1)
  - MULTI-ORGAN FAILURE [None]
